FAERS Safety Report 7797575-1 (Version None)
Quarter: 2011Q4

REPORT INFORMATION
  Report Type: 
  Country: None (occurrence: None)
  Receive Date: 20111005
  Receipt Date: 20110926
  Transmission Date: 20120403
  Serious: Yes (Hospitalization)
  Sender: FDA-Public Use
  Company Number: CA-JNJFOC-20110911117

PATIENT
  Sex: Male
  Weight: 67 kg

DRUGS (8)
  1. REMICADE [Suspect]
     Indication: RHEUMATOID ARTHRITIS
     Route: 042
     Dates: start: 20040201
  2. PANTOPRAZOLE SODIUM [Concomitant]
     Route: 065
     Dates: start: 20090101
  3. ATENDOL [Concomitant]
     Route: 065
     Dates: start: 20090101
  4. CRESTOR [Concomitant]
     Route: 065
     Dates: start: 20090101
  5. ATASOL [Concomitant]
     Route: 065
     Dates: start: 20110907
  6. EZETIMIBE [Concomitant]
     Route: 065
     Dates: start: 20090101
  7. NITROGLYCERIN SPRAY [Concomitant]
     Route: 065
     Dates: start: 20090101
  8. ALTACE [Concomitant]
     Route: 065
     Dates: start: 20090101

REACTIONS (2)
  - TOE OPERATION [None]
  - BUNION OPERATION [None]
